FAERS Safety Report 5720742-5 (Version None)
Quarter: 2008Q2

REPORT INFORMATION
  Report Type: 
  Country: None (occurrence: None)
  Receive Date: 20080429
  Receipt Date: 20080425
  Transmission Date: 20081010
  Serious: Yes (Other)
  Sender: FDA-Public Use
  Company Number: IT-BRISTOL-MYERS SQUIBB COMPANY-14140909

PATIENT
  Age: 71 Year
  Sex: Female

DRUGS (12)
  1. CYCLOPHOSPHAMIDE [Suspect]
     Indication: BREAST CANCER
     Dosage: ALSO TAKEN ON JUN1986 TO APR1987, FEB TO MAY1996, APR1997 TO OCT02.
     Dates: start: 19840101
  2. CYCLOPHOSPHAMIDE [Suspect]
     Indication: NON-HODGKIN'S LYMPHOMA
     Dosage: ALSO TAKEN ON JUN1986 TO APR1987, FEB TO MAY1996, APR1997 TO OCT02.
     Dates: start: 19840101
  3. DOXORUBICIN HCL [Suspect]
     Indication: NON-HODGKIN'S LYMPHOMA
     Dates: start: 19960201, end: 19960501
  4. ETOPOSIDE [Suspect]
     Indication: NON-HODGKIN'S LYMPHOMA
     Dates: start: 19960201, end: 19960501
  5. METHOTREXATE [Suspect]
     Indication: BREAST CANCER
     Dates: start: 19840101
  6. FLUOROURACIL [Suspect]
     Indication: BREAST CANCER
     Dates: start: 19840101
  7. VINBLASTINE SULFATE [Suspect]
     Indication: NON-HODGKIN'S LYMPHOMA
     Dosage: ALSO TAKEN ON JUN 86 TO APR 87;FEB 96 TO MAY96.
     Dates: start: 19970401, end: 20021001
  8. PROCARBAZINE [Suspect]
     Indication: NON-HODGKIN'S LYMPHOMA
     Dates: start: 19860601, end: 19870401
  9. BLEOMYCIN SULFATE [Suspect]
     Indication: NON-HODGKIN'S LYMPHOMA
     Dates: start: 19960201, end: 19960501
  10. MITOXANTRONE [Suspect]
     Indication: NON-HODGKIN'S LYMPHOMA
     Dates: start: 19970401, end: 20021001
  11. RADIOTHERAPY [Suspect]
     Indication: NON-HODGKIN'S LYMPHOMA
     Dates: start: 19970401, end: 20021001
  12. IMATINIB MESYLATE [Suspect]
     Indication: CHRONIC MYELOID LEUKAEMIA
     Dosage: 375 MG/MEQ
     Dates: start: 20050201

REACTIONS (2)
  - CHRONIC MYELOID LEUKAEMIA [None]
  - NON-HODGKIN'S LYMPHOMA [None]
